FAERS Safety Report 16039696 (Version 1)
Quarter: 2019Q1

REPORT INFORMATION
  Report Type: Spontaneous
  Country: KR (occurrence: KR)
  Receive Date: 20190306
  Receipt Date: 20190306
  Transmission Date: 20190418
  Serious: Yes (Hospitalization, Other)
  Sender: FDA-Public Use
  Company Number: KR-009507513-1903KOR000227

PATIENT
  Sex: Female

DRUGS (4)
  1. MEGACE [Concomitant]
     Active Substance: MEGESTROL ACETATE
     Dosage: UNK
     Dates: start: 20181206, end: 20181226
  2. KEYTRUDA [Suspect]
     Active Substance: PEMBROLIZUMAB
     Dosage: QUANTITY 2, 1 DAY
     Dates: start: 20181207, end: 20181207
  3. KEYTRUDA [Suspect]
     Active Substance: PEMBROLIZUMAB
     Indication: ANGIOCENTRIC LYMPHOMA
     Dosage: UNK
     Dates: start: 20181113, end: 20181113
  4. DICAMAX D [Concomitant]
     Dosage: UNK
     Route: 048
     Dates: start: 20181206, end: 20181226

REACTIONS (3)
  - Product use in unapproved indication [Unknown]
  - Oxygen therapy [Unknown]
  - Adverse event [Unknown]

NARRATIVE: CASE EVENT DATE: 20181113
